FAERS Safety Report 18506273 (Version 9)
Quarter: 2025Q1

REPORT INFORMATION
  Report Type: Report from Study
  Country: US (occurrence: US)
  Receive Date: 20201116
  Receipt Date: 20250113
  Transmission Date: 20250409
  Serious: Yes (Hospitalization, Other)
  Sender: TAKEDA
  Company Number: US-TAKEDA-2018TUS027710

PATIENT
  Age: 54 Year
  Sex: Female

DRUGS (31)
  1. PONATINIB [Suspect]
     Active Substance: PONATINIB
     Indication: Chronic myeloid leukaemia
     Dosage: 15 MILLIGRAM, QD
     Dates: start: 20180521
  2. PONATINIB [Suspect]
     Active Substance: PONATINIB
     Dosage: 15 MILLIGRAM, Q72H
  3. PONATINIB [Suspect]
     Active Substance: PONATINIB
     Dosage: 15 MILLIGRAM, Q72H
  4. PONATINIB [Suspect]
     Active Substance: PONATINIB
     Dosage: 15 MILLIGRAM, Q72H
  5. PONATINIB [Suspect]
     Active Substance: PONATINIB
     Dosage: 15 MILLIGRAM, QD
  6. PONATINIB [Suspect]
     Active Substance: PONATINIB
  7. PONATINIB [Suspect]
     Active Substance: PONATINIB
  8. PONATINIB [Suspect]
     Active Substance: PONATINIB
     Dosage: 15 MILLIGRAM, Q72H
  9. BUSPIRONE HCL [Concomitant]
     Active Substance: BUSPIRONE HYDROCHLORIDE
  10. CLINDAMYCIN PHOSPHATE [Concomitant]
     Active Substance: CLINDAMYCIN PHOSPHATE
  11. GABAPENTIN [Concomitant]
     Active Substance: GABAPENTIN
  12. ACETAMINOPHEN\HYDROCODONE [Concomitant]
     Active Substance: ACETAMINOPHEN\HYDROCODONE
  13. HYDROQUINONE [Concomitant]
     Active Substance: HYDROQUINONE
  14. LIDOCAINE [Concomitant]
     Active Substance: LIDOCAINE
  15. ALPRAZOLAM [Concomitant]
     Active Substance: ALPRAZOLAM
  16. ASTEPRO [Concomitant]
     Active Substance: AZELASTINE HYDROCHLORIDE
  17. METHOCARBAMOL [Concomitant]
     Active Substance: METHOCARBAMOL
  18. REGLAN [Concomitant]
     Active Substance: METOCLOPRAMIDE HYDROCHLORIDE
  19. ONDANSETRON HYDROCHLORIDE [Concomitant]
     Active Substance: ONDANSETRON HYDROCHLORIDE
  20. PREDNISONE [Concomitant]
     Active Substance: PREDNISONE
  21. TRAZODONE HCL [Concomitant]
     Active Substance: TRAZODONE HYDROCHLORIDE
  22. RETIN-A [Concomitant]
     Active Substance: TRETINOIN
  23. AMBIEN [Concomitant]
     Active Substance: ZOLPIDEM TARTRATE
  24. AMLODIPINE BESYLATE [Concomitant]
     Active Substance: AMLODIPINE BESYLATE
  25. HYDROMORPHONE HCL [Concomitant]
     Active Substance: HYDROMORPHONE HYDROCHLORIDE
  26. CYMBALTA [Concomitant]
     Active Substance: DULOXETINE HYDROCHLORIDE
  27. LISINOPRIL [Concomitant]
     Active Substance: LISINOPRIL
  28. VERAPAMIL HCL [Concomitant]
     Active Substance: VERAPAMIL HYDROCHLORIDE
  29. OXYCODONE HYDROCHLORIDE [Concomitant]
     Active Substance: OXYCODONE HYDROCHLORIDE
  30. ACYCLOVIR [Concomitant]
     Active Substance: ACYCLOVIR
  31. HYDROCODONE BITARTRATE [Concomitant]
     Active Substance: HYDROCODONE BITARTRATE

REACTIONS (24)
  - Sjogren^s syndrome [Unknown]
  - Pneumonia [Unknown]
  - Diarrhoea [Unknown]
  - Influenza [Unknown]
  - COVID-19 [Unknown]
  - Lipase abnormal [Unknown]
  - Breast pain [Unknown]
  - Breast mass [Unknown]
  - Illness [Unknown]
  - Fibromyalgia [Unknown]
  - Blood calcium abnormal [Unknown]
  - Product dose omission issue [Unknown]
  - Off label use [Unknown]
  - Blood glucose increased [Unknown]
  - Herpes zoster [Unknown]
  - Infection [Unknown]
  - Nasopharyngitis [Unknown]
  - Nausea [Unknown]
  - Abdominal pain upper [Unknown]
  - Arthralgia [Unknown]
  - Malaise [Unknown]
  - Headache [Unknown]
  - Dizziness [Unknown]
  - Pain in extremity [Unknown]

NARRATIVE: CASE EVENT DATE: 20230801
